FAERS Safety Report 16215025 (Version 2)
Quarter: 2019Q2

REPORT INFORMATION
  Report Type: Report from Study
  Country: None (occurrence: US)
  Receive Date: 20190418
  Receipt Date: 20190617
  Transmission Date: 20190711
  Serious: Yes (Other)
  Sender: FDA-Public Use
  Company Number: US-ABBVIE-19S-163-2749987-00

PATIENT
  Sex: Male
  Weight: 115.77 kg

DRUGS (1)
  1. ANDROGEL [Suspect]
     Active Substance: TESTOSTERONE
     Indication: BLOOD TESTOSTERONE DECREASED
     Route: 061
     Dates: start: 2012

REACTIONS (7)
  - Retinal detachment [Unknown]
  - Spinal operation [Unknown]
  - Cataract [Unknown]
  - Histoplasmosis [Unknown]
  - Spinal fusion surgery [Unknown]
  - Corneal transplant [Unknown]
  - Strabismus [Unknown]
